FAERS Safety Report 9406881 (Version 1)
Quarter: 2013Q3

REPORT INFORMATION
  Report Type: Spontaneous
  Country: US (occurrence: US)
  Receive Date: 20130718
  Receipt Date: 20130718
  Transmission Date: 20140515
  Serious: Yes (Other)
  Sender: FDA-Public Use
  Company Number: PHEH2013US015048

PATIENT
  Sex: Male

DRUGS (2)
  1. EXELON PATCH [Suspect]
     Dosage: 4.6 MG, DAILY
     Route: 062
  2. EXELON PATCH [Suspect]
     Dosage: 9.5 MG, DAILY
     Route: 062

REACTIONS (5)
  - Hemiplegia [Recovered/Resolved]
  - VIIth nerve paralysis [Recovered/Resolved]
  - Cerebrovascular accident [Recovered/Resolved]
  - Extrapyramidal disorder [Recovered/Resolved]
  - Musculoskeletal stiffness [Recovered/Resolved]
